FAERS Safety Report 6619355-2 (Version None)
Quarter: 2010Q1

REPORT INFORMATION
  Report Type: 
  Country: None (occurrence: None)
  Receive Date: 20100303
  Receipt Date: 20100217
  Transmission Date: 20100710
  Serious: Yes (Other)
  Sender: FDA-Public Use
  Company Number: 2010AL001150

PATIENT
  Age: 18 Year
  Sex: Female

DRUGS (3)
  1. LIDOCAINE HYDROCHLORIDE ORAL  (VISCOUS) [Suspect]
     Dosage: SC
     Route: 058
  2. IMPLANON [Concomitant]
  3. ANTIBIOTICS [Concomitant]

REACTIONS (5)
  - INFECTION [None]
  - INJECTION SITE ERYTHEMA [None]
  - INJECTION SITE INDURATION [None]
  - INJECTION SITE WARMTH [None]
  - MUSCULOSKELETAL DISORDER [None]
